FAERS Safety Report 16029971 (Version 1)
Quarter: 2019Q2

REPORT INFORMATION
  Report Type: Spontaneous
  Country: AF (occurrence: AF)
  Receive Date: 20190304
  Receipt Date: 20190304
  Transmission Date: 20190711
  Serious: Yes (Life-Threatening, Hospitalization)
  Sender: FDA-Public Use
  Company Number: None

PATIENT
  Age: 59 Year
  Sex: Male
  Weight: 133 kg

DRUGS (8)
  1. ROSUVASTATIN. [Concomitant]
     Active Substance: ROSUVASTATIN
     Dates: start: 20120301, end: 20190301
  2. CARVEDILOL. [Concomitant]
     Active Substance: CARVEDILOL
     Dates: start: 20120301, end: 20190303
  3. FUROSEMIDE. [Concomitant]
     Active Substance: FUROSEMIDE
     Dates: start: 20120301, end: 20190301
  4. APIXABAN [Suspect]
     Active Substance: APIXABAN
     Indication: ATRIAL FIBRILLATION
     Route: 048
     Dates: end: 20190221
  5. DILTIAZEM. [Concomitant]
     Active Substance: DILTIAZEM
     Dates: start: 20120301, end: 20190301
  6. LOSARTAN. [Concomitant]
     Active Substance: LOSARTAN
     Dates: start: 20150315, end: 20190301
  7. CLONIDINE. [Concomitant]
     Active Substance: CLONIDINE
     Dates: start: 20120301, end: 20190301
  8. FEBUXOSTAT. [Concomitant]
     Active Substance: FEBUXOSTAT
     Dates: start: 20120301, end: 20190301

REACTIONS (5)
  - Flank pain [None]
  - Renal haematoma [None]
  - Haemoglobin decreased [None]
  - Hypotension [None]
  - Perirenal haematoma [None]

NARRATIVE: CASE EVENT DATE: 20190301
